FAERS Safety Report 21671162 (Version 2)
Quarter: 2022Q4

REPORT INFORMATION
  Report Type: Spontaneous
  Country: US (occurrence: US)
  Receive Date: 20221202
  Receipt Date: 20221205
  Transmission Date: 20230112
  Serious: No
  Sender: FDA-Public Use
  Company Number: US-SA-SAC20221130001386

PATIENT
  Sex: Female
  Weight: 56.236 kg

DRUGS (1)
  1. DUPIXENT [Suspect]
     Active Substance: DUPILUMAB
     Indication: Dermatitis atopic
     Dosage: 300 MG, QOW
     Route: 058
     Dates: start: 2017

REACTIONS (11)
  - Pain of skin [Not Recovered/Not Resolved]
  - Pain in extremity [Not Recovered/Not Resolved]
  - Stress [Not Recovered/Not Resolved]
  - Inflammation [Not Recovered/Not Resolved]
  - Illness [Not Recovered/Not Resolved]
  - Pyrexia [Not Recovered/Not Resolved]
  - Visual impairment [Not Recovered/Not Resolved]
  - Skin exfoliation [Not Recovered/Not Resolved]
  - Eczema [Not Recovered/Not Resolved]
  - Therapeutic response shortened [Unknown]
  - Product storage error [Unknown]
